FAERS Safety Report 7833270-8 (Version None)
Quarter: 2011Q4

REPORT INFORMATION
  Report Type: 
  Country: None (occurrence: None)
  Receive Date: 20111024
  Receipt Date: 20111013
  Transmission Date: 20120403
  Serious: Yes (Other)
  Sender: FDA-Public Use
  Company Number: MX-SANOFI-AVENTIS-2010SA064278

PATIENT
  Age: 63 Year
  Sex: Female
  Weight: 67 kg

DRUGS (6)
  1. LANTUS [Suspect]
     Indication: TYPE 2 DIABETES MELLITUS
     Route: 058
     Dates: start: 20080101, end: 20100610
  2. LANTUS [Suspect]
     Route: 058
     Dates: start: 20100610
  3. METOPROLOL TARTRATE [Concomitant]
     Route: 048
     Dates: start: 20060501
  4. PAXIL [Concomitant]
     Indication: DEPRESSION
     Route: 048
     Dates: start: 20080601
  5. ALPRAZOLAM [Concomitant]
     Indication: DEPRESSION
     Route: 048
     Dates: start: 20080601
  6. LOSARTAN POTASSIUM [Concomitant]
     Route: 048
     Dates: start: 20060501

REACTIONS (3)
  - CATARACT OPERATION [None]
  - HYPERTENSION [None]
  - HYPERGLYCAEMIA [None]
